FAERS Safety Report 4876377-X (Version None)
Quarter: 2006Q1

REPORT INFORMATION
  Report Type: 
  Country: None (occurrence: None)
  Receive Date: 20060110
  Receipt Date: 20050921
  Transmission Date: 20060701
  Serious: Yes (Other)
  Sender: FDA-Public Use
  Company Number: PHEH2005US10516

PATIENT
  Age: 91 Year
  Sex: Male

DRUGS (1)
  1. AREDIA [Suspect]
     Indication: MULTIPLE MYELOMA
     Dates: start: 19990101

REACTIONS (3)
  - BONE DISORDER [None]
  - ORAL SOFT TISSUE DISORDER [None]
  - OSTEONECROSIS [None]
